FAERS Safety Report 4818628-3 (Version None)
Quarter: 2005Q4

REPORT INFORMATION
  Report Type: 
  Country: None (occurrence: None)
  Receive Date: 20051101
  Receipt Date: 20051027
  Transmission Date: 20060501
  Serious: Yes (Other)
  Sender: FDA-Public Use
  Company Number: 200513682GDS

PATIENT

DRUGS (6)
  1. AVELOX [Suspect]
     Indication: URINARY TRACT INFECTION
     Dosage: 400 MG, QD, ORAL
     Route: 048
     Dates: start: 20050706, end: 20050713
  2. SINGULAIR [Concomitant]
  3. ADAIR DISKUS [Concomitant]
  4. VENTOLIN DISKUS [Concomitant]
  5. EMECORT [Concomitant]
  6. NASONEX [Concomitant]

REACTIONS (3)
  - BLOOD PRESSURE SYSTOLIC INCREASED [None]
  - OFF LABEL USE [None]
  - PHOTOSENSITIVITY REACTION [None]
